FAERS Safety Report 4876890-5 (Version None)
Quarter: 2006Q1

REPORT INFORMATION
  Report Type: 
  Country: None (occurrence: None)
  Receive Date: 20060109
  Receipt Date: 20060109
  Transmission Date: 20060701
  Serious: Yes (Life-Threatening, Hospitalization)
  Sender: FDA-Public Use
  Company Number: None

PATIENT
  Age: 82 Year
  Sex: Male
  Weight: 72.1219 kg

DRUGS (2)
  1. ZOSYN [Suspect]
     Dosage: 4.5 GM Q8 H IV
     Route: 042
     Dates: start: 20050921, end: 20051009
  2. WARFARIN SODIUM [Concomitant]

REACTIONS (8)
  - ASTHENIA [None]
  - FALL [None]
  - FATIGUE [None]
  - HEPATIC FAILURE [None]
  - NEUTROPENIA [None]
  - RENAL FAILURE [None]
  - SUBDURAL HAEMATOMA [None]
  - THROMBOCYTOPENIA [None]
